FAERS Safety Report 8515626-3 (Version None)
Quarter: 2012Q3

REPORT INFORMATION
  Report Type: 
  Country: None (occurrence: None)
  Receive Date: 20120717
  Receipt Date: 20120712
  Transmission Date: 20120928
  Serious: Yes (Life-Threatening, Hospitalization, Disabling)
  Sender: FDA-Public Use
  Company Number: PHEH2012US013893

PATIENT
  Sex: Male
  Weight: 92 kg

DRUGS (8)
  1. NORVASC [Concomitant]
     Indication: HYPERTENSION
     Route: 048
  2. JANUVIA [Concomitant]
     Indication: DIABETES MELLITUS
  3. TEKTURNA [Suspect]
  4. TICLOPIDINE HCL [Concomitant]
     Indication: ATRIAL FIBRILLATION
  5. ASPIRIN [Concomitant]
     Indication: CORONARY ARTERY DISEASE
     Route: 048
  6. TRICOR [Concomitant]
     Indication: HYPERLIPIDAEMIA
     Route: 048
  7. LISINOPRIL [Concomitant]
     Route: 048
  8. ANTICOAGULANTS/ ANTIPLATELETS [Concomitant]

REACTIONS (2)
  - HAEMORRHAGIC STROKE [None]
  - BASAL GANGLIA HAEMORRHAGE [None]
